FAERS Safety Report 4605961-3 (Version None)
Quarter: 2005Q1

REPORT INFORMATION
  Report Type: 
  Country: None (occurrence: None)
  Receive Date: 20050311
  Receipt Date: 20021018
  Transmission Date: 20050727
  Serious: Yes (Hospitalization, Disabling)
  Sender: FDA-Public Use
  Company Number: JP-GLAXOSMITHKLINE-B0282955A

PATIENT
  Age: 74 Year
  Sex: Female

DRUGS (11)
  1. VALTREX [Suspect]
     Indication: HERPES ZOSTER
     Dosage: 750MG TWICE PER DAY
     Route: 048
     Dates: start: 20021016, end: 20021016
  2. ASPIRIN [Concomitant]
     Dosage: 100MG PER DAY
     Route: 048
  3. ISOSORBIDE MONONITRATE [Concomitant]
     Dosage: 40MG PER DAY
     Route: 048
  4. PRECIPITATED CALCIUM CARBONATE [Concomitant]
     Dosage: 3G PER DAY
     Route: 048
  5. UBIDECARENONE [Concomitant]
     Dosage: 150MG PER DAY
     Route: 048
  6. UBIDECARENONE [Concomitant]
     Dosage: 30MG PER DAY
     Route: 048
  7. SENNOSIDE [Concomitant]
     Dosage: 12MG PER DAY
     Route: 048
  8. EPINASTINE HYDROCHLORIDE [Concomitant]
     Dosage: 20MG PER DAY
     Route: 048
  9. CHINESE HERBAL MEDICINE [Concomitant]
     Dosage: 2.5G PER DAY
     Route: 048
  10. DOMPERIDONE [Concomitant]
     Dosage: 10MG PER DAY
     Route: 048
  11. FUROSEMIDE [Concomitant]
     Dosage: 40MG PER DAY
     Route: 048

REACTIONS (14)
  - ABASIA [None]
  - ABNORMAL BEHAVIOUR [None]
  - AREFLEXIA [None]
  - DELIRIUM [None]
  - DEPRESSED LEVEL OF CONSCIOUSNESS [None]
  - DISORIENTATION [None]
  - DYSARTHRIA [None]
  - ENCEPHALITIS [None]
  - HALLUCINATION [None]
  - HYPERREFLEXIA [None]
  - NEUROTOXICITY [None]
  - OVERDOSE [None]
  - PUPILLARY REFLEX IMPAIRED [None]
  - SPEECH DISORDER [None]
